FAERS Safety Report 4833351-7 (Version None)
Quarter: 2005Q4

REPORT INFORMATION
  Report Type: 
  Country: None (occurrence: None)
  Receive Date: 20051117
  Receipt Date: 20051108
  Transmission Date: 20060501
  Serious: Yes (Hospitalization)
  Sender: FDA-Public Use
  Company Number: 2005153295

PATIENT
  Age: 58 Year
  Sex: Female

DRUGS (4)
  1. LIPITOR [Suspect]
     Indication: HYPERCHOLESTEROLAEMIA
     Dosage: 80 MG (80 MG, 1 IN 1 D), ORAL
     Route: 048
     Dates: start: 20050805
  2. ASPIRIN [Concomitant]
  3. CLOPIDOGREL (CLOPIDOGREL) [Concomitant]
  4. LEVOTHYROXINE SODIUM [Concomitant]

REACTIONS (5)
  - ANXIETY [None]
  - ARRHYTHMIA [None]
  - CONDITION AGGRAVATED [None]
  - DIZZINESS [None]
  - PALPITATIONS [None]
